FAERS Safety Report 5058225-0 (Version None)
Quarter: 2006Q3

REPORT INFORMATION
  Report Type: 
  Country: None (occurrence: None)
  Receive Date: 20060721
  Receipt Date: 20060712
  Transmission Date: 20061208
  Serious: Yes (Other)
  Sender: FDA-Public Use
  Company Number: PHBS2006RU10433

PATIENT
  Age: 76 Year
  Sex: Female

DRUGS (5)
  1. DIOVAN [Suspect]
     Indication: HYPERTENSION
     Dosage: 80 MG/DAY
     Route: 048
  2. DIOVAN [Suspect]
     Dosage: 160 MG/DAY
     Route: 048
  3. LOKREN [Suspect]
     Dosage: 10 MG/DAY
  4. LOKREN [Suspect]
     Dosage: 5 MG/DAY
  5. LOVASTATIN [Concomitant]

REACTIONS (4)
  - HYPERTENSION [None]
  - LARYNGEAL OEDEMA [None]
  - URTICARIA [None]
  - WHEEZING [None]
